FAERS Safety Report 6111689-3 (Version None)
Quarter: 2009Q1

REPORT INFORMATION
  Report Type: 
  Country: None (occurrence: None)
  Receive Date: 20090311
  Receipt Date: 20090226
  Transmission Date: 20090719
  Serious: Yes (Other)
  Sender: FDA-Public Use
  Company Number: ES-ROCHE-617296

PATIENT
  Age: 52 Year
  Sex: Male

DRUGS (2)
  1. PEGASYS [Suspect]
     Route: 058
     Dates: start: 20081007, end: 20081112
  2. RIBAVIRIN [Suspect]
     Dosage: FREQUENCY: 5/DAY
     Route: 048
     Dates: start: 20081007, end: 20081112

REACTIONS (3)
  - ACUTE MYOCARDIAL INFARCTION [None]
  - HEMIPARESIS [None]
  - PARAESTHESIA [None]
